FAERS Safety Report 6892305-X (Version None)
Quarter: 2010Q3

REPORT INFORMATION
  Report Type: 
  Country: None (occurrence: None)
  Receive Date: 20100731
  Receipt Date: 20080326
  Transmission Date: 20110219
  Serious: Yes (Other)
  Sender: FDA-Public Use
  Company Number: US-PFIZER INC-2008027520

PATIENT
  Sex: Female

DRUGS (1)
  1. NEURONTIN [Suspect]
     Indication: NEURALGIA

REACTIONS (5)
  - CONTUSION [None]
  - FALL [None]
  - JOINT INJURY [None]
  - LOWER LIMB FRACTURE [None]
  - SOMNOLENCE [None]
